FAERS Safety Report 15246633 (Version 1)
Quarter: 2018Q3

REPORT INFORMATION
  Report Type: Other
  Country: None (occurrence: IT)
  Receive Date: 20180806
  Receipt Date: 20180806
  Transmission Date: 20181010
  Serious: Yes (Other)
  Sender: FDA-Public Use
  Company Number: IT-LABORATOIRE HRA PHARMA-2053337

PATIENT
  Age: 53 Year
  Sex: Male
  Weight: 116 kg

DRUGS (6)
  1. METOPIRONE [Suspect]
     Active Substance: METYRAPONE
     Indication: CUSHING^S SYNDROME
     Route: 048
  2. CISPLATIN. [Concomitant]
     Active Substance: CISPLATIN
  3. MITOTANE [Suspect]
     Active Substance: MITOTANE
     Route: 048
  4. ETOPOSIDE. [Concomitant]
     Active Substance: ETOPOSIDE
  5. GRANULOCYTE COLONY?STIMULATING FACTOR [Concomitant]
     Active Substance: GRANULOCYTE COLONY-STIMULATING FACTOR NOS
  6. DOXORUBIN [Concomitant]
     Active Substance: DOXORUBICIN

REACTIONS (2)
  - Anaemia [None]
  - Asthenia [None]
